FAERS Safety Report 5582405-9 (Version None)
Quarter: 2007Q4

REPORT INFORMATION
  Report Type: 
  Country: None (occurrence: None)
  Receive Date: 20071130
  Receipt Date: 20061017
  Transmission Date: 20080405
  Serious: Yes (Hospitalization)
  Sender: FDA-Public Use
  Company Number: BDI-008753

PATIENT
  Age: 22 Year
  Sex: Female

DRUGS (2)
  1. ISOVUE-370 [Suspect]
     Indication: COMPUTERISED TOMOGRAM ABDOMEN
     Dosage: 110 ML ONCE IV
     Route: 042
     Dates: start: 20061017, end: 20061017
  2. ISOVUE-370 [Suspect]
     Indication: PELVIC PAIN
     Dosage: 110 ML ONCE IV
     Route: 042
     Dates: start: 20061017, end: 20061017

REACTIONS (1)
  - ANAPHYLACTOID REACTION [None]
